FAERS Safety Report 18500153 (Version 2)
Quarter: 2020Q4

REPORT INFORMATION
  Report Type: Spontaneous
  Country: US (occurrence: US)
  Receive Date: 20201113
  Receipt Date: 20201218
  Transmission Date: 20210114
  Serious: No
  Sender: FDA-Public Use
  Company Number: US-BAUSCH-BL-2020-031804

PATIENT
  Age: 87 Year
  Sex: Female
  Weight: 52.21 kg

DRUGS (4)
  1. BESIVANCE [Suspect]
     Active Substance: BESIFLOXACIN
     Indication: CATARACT OPERATION
     Route: 047
     Dates: start: 20201006, end: 202010
  2. LOTEMAX [Suspect]
     Active Substance: LOTEPREDNOL ETABONATE
     Indication: CATARACT OPERATION
     Route: 047
     Dates: start: 20201001
  3. BESIVANCE [Suspect]
     Active Substance: BESIFLOXACIN
     Indication: OFF LABEL USE
  4. BROMSITE [Suspect]
     Active Substance: BROMFENAC SODIUM
     Indication: CATARACT OPERATION
     Route: 047
     Dates: start: 20201001, end: 2020

REACTIONS (6)
  - Foreign body sensation in eyes [Recovered/Resolved]
  - Chromaturia [Recovered/Resolved]
  - Burning sensation [Recovered/Resolved]
  - Ocular discomfort [Recovered/Resolved]
  - Off label use [Unknown]
  - Liquid product physical issue [Unknown]

NARRATIVE: CASE EVENT DATE: 202010
